FAERS Safety Report 9355277 (Version 1)
Quarter: 2013Q2

REPORT INFORMATION
  Report Type: Report from Study
  Country: DE (occurrence: DE)
  Receive Date: 20130619
  Receipt Date: 20130619
  Transmission Date: 20140414
  Serious: Yes (Death, Hospitalization)
  Sender: FDA-Public Use
  Company Number: DE-ROCHE-1088956

PATIENT
  Age: 73 Year
  Sex: Female
  Weight: 64.2 kg

DRUGS (5)
  1. TRASTUZUMAB [Suspect]
     Indication: BREAST CANCER
     Dosage: DATE OF LAST DOSE PRIOR TO SAE: 22/JUN/2012
     Route: 042
     Dates: start: 20120530
  2. TRASTUZUMAB [Suspect]
     Route: 042
     Dates: start: 20120530
  3. PACLITAXEL [Suspect]
     Indication: BREAST CANCER
     Dosage: DATE OF LAST DOSE PRIRO TO SAE: 09/JUL/2012
     Route: 042
     Dates: start: 20120530
  4. DOXORUBICIN [Suspect]
     Indication: BREAST CANCER
     Dosage: DATE OF LAST DOSE PRIOR TO SAE: 09/JUL/2012
     Route: 042
     Dates: start: 20120530
  5. LAPATINIB [Suspect]
     Indication: BREAST CANCER
     Dosage: DATE OF LAST DOSE PRIOR TO SAE: 01/AUG/2012
     Route: 048
     Dates: start: 20120530

REACTIONS (3)
  - Post procedural pneumonia [Fatal]
  - General physical health deterioration [Recovered/Resolved]
  - Perforated ulcer [Recovered/Resolved with Sequelae]
